FAERS Safety Report 7215035-3 (Version None)
Quarter: 2011Q1

REPORT INFORMATION
  Report Type: 
  Country: None (occurrence: None)
  Receive Date: 20110107
  Receipt Date: 20100708
  Transmission Date: 20110831
  Serious: No
  Sender: FDA-Public Use
  Company Number: A0871000A

PATIENT
  Sex: Female

DRUGS (1)
  1. LOVAZA [Suspect]
     Dosage: 1G FOUR TIMES PER DAY
     Dates: start: 20090101

REACTIONS (2)
  - DIARRHOEA [None]
  - GASTRIC DISORDER [None]
